FAERS Safety Report 9185173 (Version 1)
Quarter: 2012Q4

REPORT INFORMATION
  Report Type: 
  Country: US (occurrence: US)
  Receive Date: 20121101
  Receipt Date: 20121101
  Transmission Date: 20130627
  Serious: Yes (Life-Threatening)
  Sender: FDA-Public Use
  Company Number: US-BAYER-2012-114404

PATIENT
  Sex: Male

DRUGS (2)
  1. AVELOX [Suspect]
  2. ANTIHYPERTENSIVES [Concomitant]

REACTIONS (3)
  - Hypertension [None]
  - Panic attack [None]
  - Psychotic disorder [None]
